FAERS Safety Report 7110269-0 (Version None)
Quarter: 2010Q4

REPORT INFORMATION
  Report Type: 
  Country: None (occurrence: None)
  Receive Date: 20101117
  Receipt Date: 20101117
  Transmission Date: 20110411
  Serious: Yes (Other)
  Sender: FDA-Public Use
  Company Number: None

PATIENT
  Age: 44 Year
  Sex: Female
  Weight: 52.1637 kg

DRUGS (1)
  1. CELEBREX [Suspect]
     Indication: ARTHRALGIA
     Dosage: 200 MG BID (TWICE DAYS)
     Dates: start: 20020102

REACTIONS (6)
  - HAEMORRHAGE [None]
  - HAIR GROWTH ABNORMAL [None]
  - PURULENCE [None]
  - RENAL DISORDER [None]
  - SCAR [None]
  - SKIN DISORDER [None]
